FAERS Safety Report 5575055-1 (Version None)
Quarter: 2007Q4

REPORT INFORMATION
  Report Type: 
  Country: None (occurrence: None)
  Receive Date: 20071221
  Receipt Date: 20071221
  Transmission Date: 20080405
  Serious: Yes (Life-Threatening)
  Sender: FDA-Public Use
  Company Number: None

PATIENT
  Age: 50 Year
  Sex: Female
  Weight: 84.55 kg

DRUGS (2)
  1. CIPRO [Suspect]
     Indication: PERITONITIS BACTERIAL
  2. CIPRO [Suspect]
     Indication: PROPHYLAXIS

REACTIONS (7)
  - ABDOMINAL DISTENSION [None]
  - BIOPSY BONE MARROW ABNORMAL [None]
  - CONFUSIONAL STATE [None]
  - DYSPNOEA [None]
  - HYPERSPLENISM [None]
  - NEUTROPENIA [None]
  - WHITE BLOOD CELL COUNT DECREASED [None]
